FAERS Safety Report 5648106-3 (Version None)
Quarter: 2008Q1

REPORT INFORMATION
  Report Type: 
  Country: None (occurrence: None)
  Receive Date: 20080229
  Receipt Date: 20080214
  Transmission Date: 20080703
  Serious: Yes (Hospitalization)
  Sender: FDA-Public Use
  Company Number: 2008MB000010

PATIENT
  Age: 8 Year
  Sex: Female

DRUGS (2)
  1. CEPHALEXIN [Suspect]
     Indication: OTITIS MEDIA
     Dosage: ;PO
     Route: 048
  2. AMPICILLIN [Suspect]
     Indication: OTITIS MEDIA

REACTIONS (1)
  - SERUM SICKNESS [None]
